FAERS Safety Report 10166426 (Version 1)
Quarter: 2014Q2

REPORT INFORMATION
  Report Type: Spontaneous
  Country: US (occurrence: US)
  Receive Date: 20140512
  Receipt Date: 20140512
  Transmission Date: 20141212
  Serious: Yes (Hospitalization, Other)
  Sender: FDA-Public Use
  Company Number: US-BAYER-2014-067816

PATIENT
  Age: 28 Year
  Sex: Female

DRUGS (5)
  1. OCELLA [Suspect]
  2. PROAIR HFA [Concomitant]
     Dosage: 2 PUFFS EVERY SIX HOURS AS NEEDED
     Dates: start: 20121025
  3. ZITHROMAX [Concomitant]
     Dosage: 250 MG, FOR 5 DAYS
     Dates: start: 20121025
  4. SYEDA [Concomitant]
     Indication: ORAL CONTRACEPTION
     Dosage: UNK
     Dates: start: 20121025
  5. PERCOCET [Concomitant]
     Indication: PAIN

REACTIONS (3)
  - Pelvic venous thrombosis [Recovering/Resolving]
  - Deep vein thrombosis [Recovering/Resolving]
  - Cholecystectomy [None]
